FAERS Safety Report 4663525-X (Version None)
Quarter: 2005Q2

REPORT INFORMATION
  Report Type: 
  Country: None (occurrence: None)
  Receive Date: 20050517
  Receipt Date: 20041203
  Transmission Date: 20051028
  Serious: Yes (Hospitalization)
  Sender: FDA-Public Use
  Company Number: GB-GLAXOSMITHKLINE-B0361334A

PATIENT
  Sex: Male

DRUGS (4)
  1. PAROXETINE HYDROCHLORIDE [Suspect]
     Route: 065
     Dates: end: 20021101
  2. MIRTAZAPINE [Concomitant]
     Route: 065
     Dates: start: 20021101
  3. LITHIUM [Concomitant]
     Route: 065
  4. PROPRANOLOL [Concomitant]
     Route: 065

REACTIONS (24)
  - ALCOHOL USE [None]
  - ANXIETY [None]
  - APHAGIA [None]
  - CONVULSION [None]
  - DEATH OF FRIEND [None]
  - DECREASED APPETITE [None]
  - DEPRESSION [None]
  - DISTURBANCE IN ATTENTION [None]
  - DRUG WITHDRAWAL SYNDROME [None]
  - HEAD INJURY [None]
  - HYPERHIDROSIS [None]
  - ILL-DEFINED DISORDER [None]
  - INTENTIONAL SELF-INJURY [None]
  - MENTAL IMPAIRMENT [None]
  - NAUSEA [None]
  - OVERDOSE [None]
  - PARANOIA [None]
  - RESTLESSNESS [None]
  - SEXUAL DYSFUNCTION [None]
  - SLEEP DISORDER [None]
  - SUICIDE ATTEMPT [None]
  - TEARFULNESS [None]
  - TREMOR [None]
  - VOMITING [None]
